FAERS Safety Report 8373006-8 (Version None)
Quarter: 2012Q2

REPORT INFORMATION
  Report Type: 
  Country: None (occurrence: None)
  Receive Date: 20120521
  Receipt Date: 20120109
  Transmission Date: 20120825
  Serious: No
  Sender: FDA-Public Use
  Company Number: US-ASTRAZENECA-2012SE05636

PATIENT
  Sex: Female

DRUGS (7)
  1. SINGULAIR [Concomitant]
     Dosage: UNKNOWN
  2. PRILOSEC OTC [Suspect]
  3. PRILOSEC OTC [Suspect]
  4. G-MEDS [Concomitant]
     Dosage: UNKNOWN
  5. LEVOCETIRIZINE DIHYDROCHLORIDE [Concomitant]
     Dosage: UNKNOWN
  6. PRILOSEC OTC [Suspect]
     Indication: GASTROOESOPHAGEAL REFLUX DISEASE
     Dosage: 1 TABLET, 1-2 TIMES A DAY
     Route: 048
     Dates: start: 20110721, end: 20110821
  7. PRILOSEC OTC [Suspect]
     Indication: PRECANCEROUS CELLS PRESENT
     Dosage: 1 TABLET, 1-2 TIMES A DAY
     Route: 048
     Dates: start: 20110721, end: 20110821

REACTIONS (8)
  - FLATULENCE [None]
  - CONDITION AGGRAVATED [None]
  - BACK PAIN [None]
  - ABDOMINAL PAIN UPPER [None]
  - ERUCTATION [None]
  - BONE PAIN [None]
  - MALAISE [None]
  - CHEST PAIN [None]
